FAERS Safety Report 16936669 (Version 1)
Quarter: 2019Q4

REPORT INFORMATION
  Report Type: Spontaneous
  Country: US (occurrence: US)
  Receive Date: 20191018
  Receipt Date: 20191018
  Transmission Date: 20200122
  Serious: Yes (Hospitalization, Other)
  Sender: FDA-Public Use
  Company Number: US-PFIZER INC-2019452214

PATIENT
  Age: 69 Year
  Sex: Male

DRUGS (9)
  1. CIALIS [Suspect]
     Active Substance: TADALAFIL
     Indication: ERECTILE DYSFUNCTION
     Dosage: 10 MG, AS NEEDED (PRN)
     Dates: start: 20100308, end: 20100308
  2. ANDROGEL [Concomitant]
     Active Substance: TESTOSTERONE
     Indication: HYPOGONADISM
     Dosage: UNK
     Dates: start: 2004
  3. METHYLPREDNISOLONE. [Concomitant]
     Active Substance: METHYLPREDNISOLONE
     Dosage: UNK
     Dates: start: 20080912
  4. CIALIS [Suspect]
     Active Substance: TADALAFIL
     Dosage: 5 MG, AS NEEDED (PRN)
     Dates: start: 20140509, end: 20140509
  5. VIAGRA [Suspect]
     Active Substance: SILDENAFIL CITRATE
     Indication: ERECTILE DYSFUNCTION
     Dosage: 100 MG, AS NEEDED (PRN)
     Route: 048
     Dates: start: 20050124, end: 20091222
  6. CIALIS [Suspect]
     Active Substance: TADALAFIL
     Dosage: 20 MG, AS NEEDED (PRN)
     Dates: start: 20110708, end: 20111230
  7. CIALIS [Suspect]
     Active Substance: TADALAFIL
     Dosage: 20 MG, AS NEEDED (PRN)
     Dates: start: 20100413, end: 20101124
  8. CIALIS [Suspect]
     Active Substance: TADALAFIL
     Dosage: 20 MG, AS NEEDED (PRN)
     Dates: start: 20120217, end: 20120406
  9. CIALIS [Suspect]
     Active Substance: TADALAFIL
     Dosage: 20 MG, AS NEEDED (PRN)
     Dates: start: 20120514, end: 20120531

REACTIONS (6)
  - Accident [Unknown]
  - Anxiety [Unknown]
  - Malignant melanoma [Unknown]
  - Cerebrovascular accident [Unknown]
  - Depression [Not Recovered/Not Resolved]
  - Respiratory fume inhalation disorder [Unknown]

NARRATIVE: CASE EVENT DATE: 2010
